FAERS Safety Report 5007691-5 (Version None)
Quarter: 2006Q2

REPORT INFORMATION
  Report Type: 
  Country: None (occurrence: None)
  Receive Date: 20060518
  Receipt Date: 20060505
  Transmission Date: 20061013
  Serious: Yes (Hospitalization, Other)
  Sender: FDA-Public Use
  Company Number: 2006062493

PATIENT
  Age: 30 Year
  Sex: Female
  Weight: 77.1115 kg

DRUGS (6)
  1. SOLU-MEDROL [Suspect]
     Indication: MULTIPLE SCLEROSIS
     Dosage: 1 GRAM (1 GRAM, 1 IN 1 D), INTRAVENOUS
     Route: 042
     Dates: start: 20010401
  2. BACLOFEN [Concomitant]
  3. DITROPAN XL [Concomitant]
  4. INTERFERON BETA (INTERFERON BETA) [Concomitant]
  5. NEURONTIN [Concomitant]
  6. DETROL LA [Concomitant]

REACTIONS (6)
  - ABASIA [None]
  - ASTHENIA [None]
  - COSTOCHONDRITIS [None]
  - DYSPNOEA [None]
  - HYPERVENTILATION [None]
  - INCORRECT DRUG ADMINISTRATION RATE [None]
